FAERS Safety Report 5383403-0 (Version None)
Quarter: 2007Q3

REPORT INFORMATION
  Report Type: 
  Country: None (occurrence: None)
  Receive Date: 20070710
  Receipt Date: 20070628
  Transmission Date: 20080115
  Serious: Yes (Other)
  Sender: FDA-Public Use
  Company Number: DE-PFIZER INC-2007054782

PATIENT
  Age: 24 Year
  Sex: Male

DRUGS (1)
  1. CHAMPIX [Suspect]
     Indication: EX-SMOKER
     Route: 048

REACTIONS (6)
  - HEADACHE [None]
  - INCORRECT DOSE ADMINISTERED [None]
  - NAUSEA [None]
  - PALLOR [None]
  - PARAESTHESIA [None]
  - SENSORY LOSS [None]
